FAERS Safety Report 9018033 (Version 1)
Quarter: 2013Q1

REPORT INFORMATION
  Report Type: Spontaneous
  Country: US (occurrence: None)
  Receive Date: 20130110
  Receipt Date: 20130110
  Transmission Date: 20140127
  Serious: Yes (Hospitalization)
  Sender: FDA-Public Use
  Company Number: None

PATIENT
  Sex: Female
  Weight: 58.85 kg

DRUGS (7)
  1. BEVACIZUMAB [Suspect]
  2. CARBOPLATIN [Suspect]
  3. PACLITAXEL (TAXOL) [Suspect]
  4. CIPRO [Concomitant]
  5. FLUCONAZOLE [Concomitant]
  6. ITRACONAZOLE [Concomitant]
  7. TOBRAMYCIN [Concomitant]

REACTIONS (8)
  - Dyspnoea [None]
  - Diarrhoea [None]
  - Constipation [None]
  - Fatigue [None]
  - Asthenia [None]
  - Hypotension [None]
  - Respiratory distress [None]
  - Atrial fibrillation [None]
